FAERS Safety Report 8341459-7 (Version None)
Quarter: 2012Q2

REPORT INFORMATION
  Report Type: 
  Country: None (occurrence: None)
  Receive Date: 20120507
  Receipt Date: 20120427
  Transmission Date: 20120825
  Serious: No
  Sender: FDA-Public Use
  Company Number: US-B.I. PHARMACEUTICALS,INC./RIDGEFIELD-2011-BP-23652BP

PATIENT
  Age: 43 Year
  Sex: Female

DRUGS (1)
  1. COMBIVENT [Suspect]
     Route: 055

REACTIONS (3)
  - FOREIGN BODY ASPIRATION [None]
  - COUGH [None]
  - NASAL CONGESTION [None]
